FAERS Safety Report 25983903 (Version 1)
Quarter: 2025Q4

REPORT INFORMATION
  Report Type: Spontaneous
  Country: EU (occurrence: EU)
  Receive Date: 20251031
  Receipt Date: 20251031
  Transmission Date: 20260117
  Serious: Yes (Hospitalization)
  Sender: TEVA
  Company Number: None

PATIENT
  Age: 37 Year
  Sex: Male
  Weight: 70.2 kg

DRUGS (1)
  1. TRISENOX [Suspect]
     Active Substance: ARSENIC TRIOXIDE
     Indication: Acute myeloid leukaemia
     Route: 042
     Dates: start: 20251001, end: 20251001

REACTIONS (2)
  - Encephalopathy [Recovering/Resolving]
  - Myoclonus [Unknown]

NARRATIVE: CASE EVENT DATE: 20251001
